FAERS Safety Report 26000216 (Version 1)
Quarter: 2025Q4

REPORT INFORMATION
  Report Type: Spontaneous
  Country: CN (occurrence: CN)
  Receive Date: 20251105
  Receipt Date: 20251105
  Transmission Date: 20260119
  Serious: Yes (Other)
  Sender: ACCORD
  Company Number: CN-Accord-511008

PATIENT
  Age: 66 Year
  Sex: Male

DRUGS (6)
  1. CARBOPLATIN [Suspect]
     Active Substance: CARBOPLATIN
     Indication: Hormone-refractory prostate cancer
     Dosage: 400 MG CARBOPLATIN ON DAY 1
     Dates: start: 202302
  2. CISPLATIN [Suspect]
     Active Substance: CISPLATIN
     Indication: Hormone-refractory prostate cancer
     Dates: start: 202302
  3. ETOPOSIDE [Suspect]
     Active Substance: ETOPOSIDE
     Indication: Hormone-refractory prostate cancer
     Dosage: ON DAY 1
     Dates: start: 202302
  4. LEUPROLIDE ACETATE [Concomitant]
     Active Substance: LEUPROLIDE ACETATE
     Indication: Hormone therapy
     Dosage: 3.75 MG BY SUBCUTANEOUS INJECTION EVERY 4 WEEKS
     Route: 058
  5. ABIRATERONE [Concomitant]
     Active Substance: ABIRATERONE
     Indication: Hormone therapy
     Route: 048
     Dates: start: 202201
  6. PREDNISONE [Concomitant]
     Active Substance: PREDNISONE

REACTIONS (4)
  - Hypoxia [Recovered/Resolved]
  - Liver injury [Recovered/Resolved]
  - Therapy partial responder [Unknown]
  - Hypotension [Recovered/Resolved]

NARRATIVE: CASE EVENT DATE: 20230101
